FAERS Safety Report 8564432-2 (Version None)
Quarter: 2012Q3

REPORT INFORMATION
  Report Type: 
  Country: None (occurrence: None)
  Receive Date: 20120803
  Receipt Date: 20120726
  Transmission Date: 20120928
  Serious: Yes (Hospitalization)
  Sender: FDA-Public Use
  Company Number: US-BAYER-2012-078292

PATIENT
  Sex: Male

DRUGS (4)
  1. PLAVIX [Interacting]
     Indication: PRODUCT USED FOR UNKNOWN INDICATION
  2. XARELTO [Interacting]
     Indication: THROMBOSIS PROPHYLAXIS
     Route: 048
  3. XARELTO [Interacting]
     Indication: ORTHOPEDIC PROCEDURE
     Route: 048
  4. ASPIRIN [Suspect]

REACTIONS (2)
  - HAEMORRHAGE [None]
  - DRUG PRESCRIBING ERROR [None]
